FAERS Safety Report 16572035 (Version 1)
Quarter: 2019Q3

REPORT INFORMATION
  Report Type: Spontaneous
  Country: US (occurrence: US)
  Receive Date: 20190531
  Receipt Date: 20190531
  Transmission Date: 20191004
  Serious: Yes (Life-Threatening, Other)
  Sender: FDA-Public Use
  Company Number: None

PATIENT
  Age: 73 Year
  Sex: Male
  Weight: 71.67 kg

DRUGS (1)
  1. ERTAPENEM. [Suspect]
     Active Substance: ERTAPENEM SODIUM
     Indication: ESCHERICHIA BACTERAEMIA
     Route: 042
     Dates: start: 20190407, end: 20190419

REACTIONS (10)
  - Tremor [None]
  - Hydronephrosis [None]
  - Dysarthria [None]
  - Agitation [None]
  - Hydroureter [None]
  - Confusional state [None]
  - Delirium [None]
  - Ureterolithiasis [None]
  - Hallucination [None]
  - Ureteric obstruction [None]

NARRATIVE: CASE EVENT DATE: 20190419
